FAERS Safety Report 12391438 (Version 1)
Quarter: 2016Q2

REPORT INFORMATION
  Report Type: Spontaneous
  Country: US (occurrence: US)
  Receive Date: 20160520
  Receipt Date: 20160520
  Transmission Date: 20160815
  Serious: No
  Sender: FDA-Public Use
  Company Number: US-INTERNATIONAL MEDICATION SYSTEMS, LIMITED-1052585

PATIENT
  Sex: Male

DRUGS (2)
  1. EVZIO [Concomitant]
     Active Substance: NALOXONE HYDROCHLORIDE
     Dates: start: 20150412, end: 20150412
  2. NALOXONE HYDROCHLORIDE. [Suspect]
     Active Substance: NALOXONE HYDROCHLORIDE
     Indication: OVERDOSE
     Route: 045
     Dates: start: 20150412, end: 20150412

REACTIONS (2)
  - Drug ineffective [Recovered/Resolved]
  - Drug withdrawal syndrome [Recovered/Resolved]

NARRATIVE: CASE EVENT DATE: 20150412
